FAERS Safety Report 8861291 (Version 1)
Quarter: 2012Q4

REPORT INFORMATION
  Report Type: Spontaneous
  Country: US (occurrence: None)
  Receive Date: 20121023
  Receipt Date: 20121023
  Transmission Date: 20130627
  Serious: Yes (Hospitalization, Other)
  Sender: FDA-Public Use
  Company Number: 140535

PATIENT
  Age: 45 Year

DRUGS (1)
  1. CYTARABINE [Suspect]
     Indication: PRECURSOR B-LYMPHOBLASTIC LEUKEMIA ACUTE
     Route: 037
     Dates: start: 20121015

REACTIONS (2)
  - Overdose [None]
  - Medication error [None]
